FAERS Safety Report 6671188-7 (Version None)
Quarter: 2010Q2

REPORT INFORMATION
  Report Type: 
  Country: None (occurrence: None)
  Receive Date: 20100407
  Receipt Date: 20100326
  Transmission Date: 20101027
  Serious: Yes (Hospitalization)
  Sender: FDA-Public Use
  Company Number: FR-BAYER-201020556GPV

PATIENT
  Age: 33 Year
  Sex: Female

DRUGS (1)
  1. MIRENA [Suspect]
     Indication: CONTRACEPTION
     Route: 015

REACTIONS (5)
  - ERYTHEMA [None]
  - ERYTHEMA NODOSUM [None]
  - INFLAMMATION [None]
  - NODULE ON EXTREMITY [None]
  - SKIN NODULE [None]
